FAERS Safety Report 7892858-9 (Version None)
Quarter: 2011Q4

REPORT INFORMATION
  Report Type: 
  Country: None (occurrence: None)
  Receive Date: 20111104
  Receipt Date: 20111024
  Transmission Date: 20120403
  Serious: Yes (Hospitalization, Other)
  Sender: FDA-Public Use
  Company Number: US-ELI_LILLY_AND_COMPANY-US201104006235

PATIENT
  Sex: Female

DRUGS (14)
  1. FORTEO [Suspect]
     Dosage: 20 UG, QD
     Dates: start: 20110701
  2. TOPAMAX [Concomitant]
  3. HYDROCHLOROTHIAZIDE [Concomitant]
  4. FORTEO [Suspect]
     Indication: OSTEOPOROSIS
     Dosage: 20 UG, QD
     Dates: end: 20110501
  5. NEURONTIN [Concomitant]
  6. VITAMIN B COMPLEX CAP [Concomitant]
  7. VENTOLIN                                /SCH/ [Concomitant]
  8. CYMBALTA [Concomitant]
  9. CALCIUM W/VITAMIN D NOS [Concomitant]
  10. ADVAIR DISKUS 100/50 [Concomitant]
  11. OXYCODONE HCL [Concomitant]
  12. ALBUTEROL [Concomitant]
  13. MULTI-VITAMIN [Concomitant]
  14. HYDROCODONE BITARTRATE [Concomitant]

REACTIONS (7)
  - SURGERY [None]
  - BACK PAIN [None]
  - RESPIRATORY DISTRESS [None]
  - STRESS [None]
  - DRUG DOSE OMISSION [None]
  - PNEUMONIA [None]
  - INTENTIONAL DRUG MISUSE [None]
